FAERS Safety Report 5325351-8 (Version None)
Quarter: 2007Q2

REPORT INFORMATION
  Report Type: 
  Country: None (occurrence: None)
  Receive Date: 20070509
  Receipt Date: 20070423
  Transmission Date: 20071010
  Serious: Yes (Other)
  Sender: FDA-Public Use
  Company Number: 2007RR-07126

PATIENT
  Age: 12 Year
  Sex: Male

DRUGS (2)
  1. PAROXETINE [Suspect]
     Dates: start: 20011001
  2. SERTRALINE [Suspect]
     Dosage: SEE IMAGE

REACTIONS (8)
  - ABNORMAL BEHAVIOUR [None]
  - AGGRESSION [None]
  - HALLUCINATION, AUDITORY [None]
  - HOMICIDE [None]
  - MANIA [None]
  - PSYCHOTIC DISORDER [None]
  - REFUSAL OF TREATMENT BY RELATIVE [None]
  - RESTLESSNESS [None]
